FAERS Safety Report 5134062-3 (Version None)
Quarter: 2006Q4

REPORT INFORMATION
  Report Type: 
  Country: None (occurrence: None)
  Receive Date: 20061019
  Receipt Date: 20061015
  Transmission Date: 20070319
  Serious: Yes (Life-Threatening, Hospitalization)
  Sender: FDA-Public Use
  Company Number: 2006-149027-NL

PATIENT
  Age: 40 Year
  Sex: Male

DRUGS (5)
  1. MIRTAZAPINE [Suspect]
     Dosage: 300 MG ONCE
  2. AMISULPRIDE [Suspect]
     Dosage: 32 G ONCE
  3. VALPROATE BISMUTH [Suspect]
     Dosage: 7 G ONCE
  4. AMITRIPTYLINE HCL [Suspect]
     Dosage: 1.25 G ONCE
  5. OMEPRAZOLE [Suspect]

REACTIONS (5)
  - BUNDLE BRANCH BLOCK LEFT [None]
  - MULTIPLE DRUG OVERDOSE [None]
  - PULSE ABSENT [None]
  - TORSADE DE POINTES [None]
  - VENTRICULAR TACHYCARDIA [None]
